FAERS Safety Report 17391928 (Version 2)
Quarter: 2020Q1

REPORT INFORMATION
  Report Type: Spontaneous
  Country: IL (occurrence: IL)
  Receive Date: 20200207
  Receipt Date: 20200210
  Transmission Date: 20200409
  Serious: Yes (Other)
  Sender: FDA-Public Use
  Company Number: IL-TEVA-2020-IL-1179041

PATIENT
  Age: 65 Year
  Sex: Male

DRUGS (6)
  1. VINBLASTINE [Suspect]
     Active Substance: VINBLASTINE
     Dosage: 6MG/M2/2 WEEKS
     Route: 065
     Dates: start: 201905
  2. TAXOTERE [Suspect]
     Active Substance: DOCETAXEL
     Dosage: 4 CYCLES OF THP
     Route: 065
     Dates: start: 201911
  3. HERCEPTIN [Suspect]
     Active Substance: TRASTUZUMAB
     Dosage: 4 CYCLES OF THP
     Route: 065
     Dates: start: 201911
  4. KEYTRUDA [Suspect]
     Active Substance: PEMBROLIZUMAB
     Route: 065
     Dates: start: 201809, end: 201911
  5. CISPLATIN. [Suspect]
     Active Substance: CISPLATIN
     Dosage: WEEKLY
     Route: 065
  6. PERJETA [Suspect]
     Active Substance: PERTUZUMAB
     Dosage: 4 CYCLES OF THP
     Route: 065
     Dates: start: 201911

REACTIONS (1)
  - Disease progression [Unknown]
